FAERS Safety Report 16099566 (Version 1)
Quarter: 2019Q1

REPORT INFORMATION
  Report Type: Spontaneous
  Country: US (occurrence: US)
  Receive Date: 20190218
  Receipt Date: 20190218
  Transmission Date: 20190418
  Serious: No
  Sender: FDA-Public Use
  Company Number: None

PATIENT
  Age: 55 Year
  Sex: Female

DRUGS (1)
  1. LETROZOLE TAB 2.5MG [Suspect]
     Active Substance: LETROZOLE
     Dates: start: 20180906

REACTIONS (3)
  - Neck pain [None]
  - Fracture [None]
  - Back pain [None]

NARRATIVE: CASE EVENT DATE: 20190218
